FAERS Safety Report 4748618-0 (Version None)
Quarter: 2005Q3

REPORT INFORMATION
  Report Type: 
  Country: None (occurrence: None)
  Receive Date: 20050817
  Receipt Date: 20050805
  Transmission Date: 20060218
  Serious: Yes (Death, Other)
  Sender: FDA-Public Use
  Company Number: USA-2002-0003150

PATIENT
  Age: 37 Year
  Sex: Male

DRUGS (3)
  1. OXYCONTIN [Suspect]
     Indication: PAIN
     Dosage: UNK MG
  2. PHENERGAN (PROMETHAZINE HYDROCHLORIDE) [Suspect]
  3. XANAX [Concomitant]

REACTIONS (7)
  - CHEST PAIN [None]
  - CORONARY ARTERY DISEASE [None]
  - DRUG DEPENDENCE [None]
  - DRUG LEVEL INCREASED [None]
  - DYSPNOEA [None]
  - MYOCARDIAL INFARCTION [None]
  - OEDEMA PERIPHERAL [None]
